FAERS Safety Report 15125832 (Version 1)
Quarter: 2018Q3

REPORT INFORMATION
  Report Type: Spontaneous
  Country: US (occurrence: US)
  Receive Date: 20180710
  Receipt Date: 20180710
  Transmission Date: 20181010
  Serious: No
  Sender: FDA-Public Use
  Company Number: US-UPSHER-SMITH LABORATORIES, LLC-2018USL00155

PATIENT
  Sex: Male
  Weight: 117.91 kg

DRUGS (8)
  1. PROZAC [Concomitant]
     Active Substance: FLUOXETINE HYDROCHLORIDE
  2. LEVOTHYROXINE. [Concomitant]
     Active Substance: LEVOTHYROXINE
  3. NOVOLOG [Concomitant]
     Active Substance: INSULIN ASPART
  4. TESTOSTERONE. [Suspect]
     Active Substance: TESTOSTERONE
     Indication: KLINEFELTER^S SYNDROME
     Dosage: 1 DOSAGE UNITS, 1X/DAY
     Route: 061
     Dates: start: 2016, end: 2016
  5. COZAAR [Concomitant]
     Active Substance: LOSARTAN POTASSIUM
  6. LIPITOR [Concomitant]
     Active Substance: ATORVASTATIN CALCIUM
  7. TESTOSTERONE. [Suspect]
     Active Substance: TESTOSTERONE
     Dosage: 2 DOSAGE UNITS, 1X/DAY
     Route: 061
     Dates: start: 2016, end: 2016
  8. LANTUS [Concomitant]
     Active Substance: INSULIN GLARGINE

REACTIONS (2)
  - Product substitution issue [Recovered/Resolved]
  - Drug effect incomplete [Recovered/Resolved]

NARRATIVE: CASE EVENT DATE: 2016
